FAERS Safety Report 15011891 (Version 2)
Quarter: 2018Q2

REPORT INFORMATION
  Report Type: Spontaneous
  Country: US (occurrence: US)
  Receive Date: 20180614
  Receipt Date: 20180620
  Transmission Date: 20180711
  Serious: Yes (Hospitalization, Disabling)
  Sender: FDA-Public Use
  Company Number: US-OTSUKA-2018_015685

PATIENT
  Sex: Female

DRUGS (2)
  1. ABILIFY [Suspect]
     Active Substance: ARIPIPRAZOLE
     Indication: POST-TRAUMATIC STRESS DISORDER
     Dosage: 10 MG, QD
     Route: 065
     Dates: end: 2011
  2. ABILIFY [Suspect]
     Active Substance: ARIPIPRAZOLE
     Indication: MAJOR DEPRESSION
     Dosage: 5 MG, QD
     Route: 065
     Dates: start: 2009

REACTIONS (14)
  - Product use in unapproved indication [Unknown]
  - Condition aggravated [Unknown]
  - Obsessive-compulsive disorder [Recovered/Resolved]
  - Eating disorder [Recovered/Resolved]
  - Loss of employment [Unknown]
  - Disability [Unknown]
  - Mental disorder [Unknown]
  - Economic problem [Unknown]
  - Emotional distress [Unknown]
  - Injury [Unknown]
  - Gambling disorder [Recovered/Resolved]
  - Anxiety [Unknown]
  - Anhedonia [Unknown]
  - Pain [Unknown]
